FAERS Safety Report 17942006 (Version 2)
Quarter: 2020Q3

REPORT INFORMATION
  Report Type: Not Available
  Country: US (occurrence: US)
  Receive Date: 20200624
  Receipt Date: 20200804
  Transmission Date: 20201103
  Serious: No
  Sender: FDA-Public Use
  Company Number: US-NEUROCRINE BIOSCIENCES INC.-2020NBI02033

PATIENT
  Age: 47 Year
  Sex: Male

DRUGS (1)
  1. INGREZZA [Suspect]
     Active Substance: VALBENAZINE
     Indication: TARDIVE DYSKINESIA
     Route: 048
     Dates: start: 20190327

REACTIONS (5)
  - Fatigue [Unknown]
  - Balance disorder [Unknown]
  - Pruritus [Unknown]
  - Visual impairment [Unknown]
  - Dizziness [Unknown]
